FAERS Safety Report 5040615-3 (Version None)
Quarter: 2006Q2

REPORT INFORMATION
  Report Type: 
  Country: None (occurrence: None)
  Receive Date: 20060630
  Receipt Date: 20060623
  Transmission Date: 20061013
  Serious: Yes (Death, Hospitalization)
  Sender: FDA-Public Use
  Company Number: FR-ABBOTT-06P-056-0336868-00

PATIENT
  Sex: Female

DRUGS (16)
  1. DEPAKOTE [Suspect]
     Indication: MANIA
     Route: 048
     Dates: start: 20060306, end: 20060317
  2. OLANZAPINE [Suspect]
     Indication: MANIA
     Route: 048
     Dates: start: 20060306, end: 20060317
  3. MYCOPHENOLATE MOFETIL [Suspect]
     Indication: DRUG USE FOR UNKNOWN INDICATION
     Route: 048
     Dates: start: 20020101, end: 20060318
  4. PREDNISONE [Concomitant]
     Indication: DRUG USE FOR UNKNOWN INDICATION
     Route: 048
     Dates: start: 20020101
  5. PREDNISONE [Concomitant]
     Dates: start: 19990101
  6. ZOPICLONE [Concomitant]
     Indication: MANIA
     Route: 048
     Dates: start: 20060306
  7. DIGOXIN [Concomitant]
     Indication: DRUG USE FOR UNKNOWN INDICATION
     Route: 065
  8. BROMAZEPAM [Concomitant]
     Indication: DRUG USE FOR UNKNOWN INDICATION
     Route: 048
  9. PARACETAMOL [Concomitant]
     Indication: DRUG USE FOR UNKNOWN INDICATION
     Route: 065
  10. ASPIRIN [Concomitant]
     Indication: DRUG USE FOR UNKNOWN INDICATION
     Route: 065
  11. BISOPROLOL FUMARATE [Concomitant]
     Indication: DRUG USE FOR UNKNOWN INDICATION
     Route: 065
  12. LEKOVIT CA [Concomitant]
     Indication: DRUG USE FOR UNKNOWN INDICATION
     Route: 065
  13. ALENDRONATE SODIUM [Concomitant]
     Indication: DRUG USE FOR UNKNOWN INDICATION
     Route: 048
  14. TRAMADOL HCL [Concomitant]
     Indication: DRUG USE FOR UNKNOWN INDICATION
     Route: 065
     Dates: start: 20060201
  15. CORTICOSTEROID NOS [Concomitant]
     Indication: DRUG USE FOR UNKNOWN INDICATION
     Dosage: 1 MG/KG/DAY
     Route: 065
  16. CORTICOSTEROID NOS [Concomitant]
     Dosage: 0.5 MG/KG/DAY
     Route: 065

REACTIONS (12)
  - AGGRESSION [None]
  - ANAEMIA [None]
  - CYTOMEGALOVIRUS INFECTION [None]
  - DIARRHOEA [None]
  - LOGORRHOEA [None]
  - MELAENA [None]
  - NECROSIS ISCHAEMIC [None]
  - PROCTITIS HAEMORRHAGIC [None]
  - PYREXIA [None]
  - RECTAL HAEMORRHAGE [None]
  - SEPSIS [None]
  - TEARFULNESS [None]
